FAERS Safety Report 9769280 (Version 2)
Quarter: 2014Q1

REPORT INFORMATION
  Report Type: Spontaneous
  Country: US (occurrence: US)
  Receive Date: 20131218
  Receipt Date: 20140131
  Transmission Date: 20141002
  Serious: Yes (Hospitalization)
  Sender: FDA-Public Use
  Company Number: PHEH2013US025548

PATIENT
  Age: 20 Year
  Sex: Female

DRUGS (5)
  1. TOBI PODHALER [Suspect]
     Indication: BACTERIAL DISEASE CARRIER
     Dosage: 4 DF, BID
     Route: 055
  2. PULMOZYME [Concomitant]
     Indication: CYSTIC FIBROSIS
     Dosage: UNK UKN, UNK
  3. ALBUTEROL [Concomitant]
     Indication: CYSTIC FIBROSIS
     Dosage: UNK UKN, PRN
  4. SODIUM CHLORIDE [Concomitant]
     Indication: CYSTIC FIBROSIS
     Dosage: UNK UKN, BID
  5. CAYSTON [Concomitant]
     Indication: CYSTIC FIBROSIS
     Dosage: UNK UKN, TID

REACTIONS (2)
  - Cystic fibrosis [Unknown]
  - Dysgeusia [Unknown]
